FAERS Safety Report 5853912-6 (Version None)
Quarter: 2008Q3

REPORT INFORMATION
  Report Type: 
  Country: None (occurrence: None)
  Receive Date: 20080822
  Receipt Date: 20080820
  Transmission Date: 20090109
  Serious: Yes (Hospitalization)
  Sender: FDA-Public Use
  Company Number: A0743810A

PATIENT
  Age: 60 Year
  Sex: Female

DRUGS (1)
  1. AVANDIA [Suspect]
     Route: 048

REACTIONS (3)
  - CARDIAC FAILURE CONGESTIVE [None]
  - HEART INJURY [None]
  - MYOCARDIAL INFARCTION [None]
